FAERS Safety Report 5822476-5 (Version None)
Quarter: 2008Q3

REPORT INFORMATION
  Report Type: 
  Country: None (occurrence: None)
  Receive Date: 20080723
  Receipt Date: 20080723
  Transmission Date: 20090109
  Serious: Yes (Hospitalization)
  Sender: FDA-Public Use
  Company Number: None

PATIENT
  Sex: Female
  Weight: 68.8 kg

DRUGS (4)
  1. ERBITUX [Suspect]
     Dosage: 1840 MG
     Dates: end: 20080610
  2. ACETAMINOPHEN AND HYDROCODONE BITARTRATE [Concomitant]
  3. MS CORTIN [Concomitant]
  4. MORPHINE SULFATE [Concomitant]

REACTIONS (11)
  - ABDOMINAL PAIN [None]
  - ANAEMIA [None]
  - AORTIC DISORDER [None]
  - DEEP VEIN THROMBOSIS [None]
  - FLANK PAIN [None]
  - GASTRIC DILATATION [None]
  - INADEQUATE ANALGESIA [None]
  - PANCREATIC DISORDER [None]
  - RETROPERITONEAL NEOPLASM [None]
  - SUPERIOR MESENTERIC ARTERY SYNDROME [None]
  - TUMOUR COMPRESSION [None]
